FAERS Safety Report 17334458 (Version 1)
Quarter: 2020Q1

REPORT INFORMATION
  Report Type: Spontaneous
  Country: US (occurrence: US)
  Receive Date: 20200128
  Receipt Date: 20200128
  Transmission Date: 20200409
  Serious: No
  Sender: FDA-Public Use
  Company Number: US-TOLMAR, INC.-19US019574

PATIENT
  Age: 86 Year
  Sex: Male

DRUGS (1)
  1. IMIQUIMOD. [Suspect]
     Active Substance: IMIQUIMOD
     Indication: LENTIGO MALIGNA
     Dosage: 6 TIMES WEEKLY FOR 12 WEEKS
     Route: 061

REACTIONS (1)
  - Application site inflammation [Recovered/Resolved]
